FAERS Safety Report 17467604 (Version 1)
Quarter: 2020Q1

REPORT INFORMATION
  Report Type: Spontaneous
  Country: US (occurrence: US)
  Receive Date: 20200226
  Receipt Date: 20200226
  Transmission Date: 20200409
  Serious: No
  Sender: FDA-Public Use
  Company Number: None

PATIENT
  Age: 13 Year
  Sex: Male
  Weight: 28.35 kg

DRUGS (9)
  1. PHENYTION ORAL SUSPENSION [Suspect]
     Active Substance: PHENYTOIN
     Indication: SEIZURE
     Dosage: ?          QUANTITY:14 ML;?
     Route: 048
     Dates: start: 20191027, end: 20200225
  2. LEVOTHYROXINE. [Concomitant]
     Active Substance: LEVOTHYROXINE
  3. LORAZEPAM. [Concomitant]
     Active Substance: LORAZEPAM
  4. CHILDRENS MULTI VITAMIN [Concomitant]
  5. DEPAKOTE [Concomitant]
     Active Substance: DIVALPROEX SODIUM
  6. EPIDIOLEX [Concomitant]
     Active Substance: CANNABIDIOL
  7. CLARITIN [Concomitant]
     Active Substance: LORATADINE
  8. PHENYTION PRN [Concomitant]
  9. OXCARBAZEPINE. [Concomitant]
     Active Substance: OXCARBAZEPINE

REACTIONS (6)
  - Vomiting [None]
  - Dizziness [None]
  - Gait disturbance [None]
  - Overdose [None]
  - Recalled product administered [None]
  - Drug interaction [None]

NARRATIVE: CASE EVENT DATE: 20191027
